FAERS Safety Report 7496349-9 (Version None)
Quarter: 2011Q2

REPORT INFORMATION
  Report Type: 
  Country: None (occurrence: None)
  Receive Date: 20110523
  Receipt Date: 20110516
  Transmission Date: 20111010
  Serious: Yes (Death, Other)
  Sender: FDA-Public Use
  Company Number: DE-ELI_LILLY_AND_COMPANY-DE201105004812

PATIENT
  Sex: Male

DRUGS (10)
  1. ONDANSETRON [Concomitant]
     Dosage: 5 MG/M2, UNK
     Route: 042
  2. GLUCOSE [Concomitant]
  3. OXALIPLATIN [Concomitant]
     Dosage: 85 MG/M2, OTHER
  4. SULFONAMIDE [Concomitant]
     Dosage: 5 MG/KG, UNK
  5. TROPISETRON HYDROCHLORIDE [Concomitant]
     Dosage: 0.2 MG/M2, UNK
     Route: 042
  6. IRINOTECAN HYDROCHLORIDE [Concomitant]
     Dosage: 175 MG/M2, OTHER
  7. GEMCITABINE HYDROCHLORIDE [Suspect]
     Indication: NEUROENDOCRINE CARCINOMA
     Dosage: 1000 MG/M2, ON DAY1, 8 AND 15
     Route: 042
  8. DIMENHYDRINATE [Concomitant]
  9. AMPHOTERICIN B [Concomitant]
  10. SODIUM CHLORIDE [Concomitant]

REACTIONS (3)
  - C-REACTIVE PROTEIN INCREASED [None]
  - DEATH [None]
  - HAEMATOTOXICITY [None]
